APPROVED DRUG PRODUCT: SERTRALINE HYDROCHLORIDE
Active Ingredient: SERTRALINE HYDROCHLORIDE
Strength: EQ 100MG BASE
Dosage Form/Route: TABLET;ORAL
Application: A214790 | Product #003 | TE Code: AB
Applicant: ASCENT PHARMACEUTICALS INC
Approved: May 3, 2021 | RLD: No | RS: No | Type: RX